FAERS Safety Report 10440584 (Version 4)
Quarter: 2014Q4

REPORT INFORMATION
  Report Type: Spontaneous
  Country: US (occurrence: US)
  Receive Date: 20140909
  Receipt Date: 20141030
  Transmission Date: 20150528
  Serious: No
  Sender: FDA-Public Use
  Company Number: US-JNJFOC-20140809726

PATIENT
  Age: 79 Year
  Sex: Female
  Weight: 50 kg

DRUGS (4)
  1. IMBRUVICA [Suspect]
     Active Substance: IBRUTINIB
     Indication: CHRONIC LYMPHOCYTIC LEUKAEMIA
     Route: 048
     Dates: start: 20140728, end: 20140809
  2. TYLENOL [Concomitant]
     Active Substance: ACETAMINOPHEN
  3. IMBRUVICA [Suspect]
     Active Substance: IBRUTINIB
     Indication: CHRONIC LYMPHOCYTIC LEUKAEMIA
     Route: 048
     Dates: start: 20140818, end: 2014
  4. LORAZEPAM. [Concomitant]
     Active Substance: LORAZEPAM

REACTIONS (11)
  - White blood cell count decreased [Not Recovered/Not Resolved]
  - Diarrhoea [Recovered/Resolved]
  - Pyrexia [Recovering/Resolving]
  - Decreased appetite [Recovered/Resolved]
  - Constipation [Recovered/Resolved]
  - Flank pain [Unknown]
  - Weight decreased [Recovered/Resolved]
  - Musculoskeletal pain [Unknown]
  - Haematochezia [Recovering/Resolving]
  - Dyspepsia [Not Recovered/Not Resolved]
  - Haemoglobin decreased [Unknown]

NARRATIVE: CASE EVENT DATE: 2014
